FAERS Safety Report 7518655-1 (Version None)
Quarter: 2011Q2

REPORT INFORMATION
  Report Type: 
  Country: None (occurrence: None)
  Receive Date: 20110523
  Receipt Date: 20110509
  Transmission Date: 20111010
  Serious: Yes (Life-Threatening, Hospitalization, Other)
  Sender: FDA-Public Use
  Company Number: 2011MA005626

PATIENT
  Age: 21 Year
  Sex: Female

DRUGS (7)
  1. FLUOXETINE [Suspect]
     Dosage: 1.1 G;
  2. LITHIUM CARBONATE [Suspect]
     Dosage: 13 G;
  3. MIRTAZAPINE [Suspect]
     Dosage: 315 MG;
  4. RISPERIDONE [Suspect]
     Dosage: 120 MG;
  5. ESCITALOPRAM [Suspect]
     Dosage: 560 MG;
  6. TRAMADOL HYDROCHLORIDE [Suspect]
     Indication: DEPRESSION
     Dosage: 3 GR;
  7. QUETIAPINE FUMARATE [Suspect]
     Dosage: 15 G;

REACTIONS (5)
  - TOXICITY TO VARIOUS AGENTS [None]
  - SEROTONIN SYNDROME [None]
  - MULTIPLE DRUG OVERDOSE [None]
  - ELECTROCARDIOGRAM T WAVE INVERSION [None]
  - ELECTROCARDIOGRAM QT PROLONGED [None]
